FAERS Safety Report 14505423 (Version 2)
Quarter: 2018Q2

REPORT INFORMATION
  Report Type: Report from Study
  Country: US (occurrence: US)
  Receive Date: 20180208
  Receipt Date: 20180618
  Transmission Date: 20180711
  Serious: Yes (Hospitalization, Other)
  Sender: FDA-Public Use
  Company Number: US-NAPPMUNDI-USA-2018-0142660

PATIENT
  Sex: Female

DRUGS (2)
  1. OXYCODONE HYDROCHLORIDE. [Suspect]
     Active Substance: OXYCODONE HYDROCHLORIDE
     Indication: PAIN
     Dosage: 120 MG, BID
     Route: 048
  2. OXYCODONE HYDROCHLORIDE. [Suspect]
     Active Substance: OXYCODONE HYDROCHLORIDE
     Dosage: 30 MG, TID
     Route: 048
     Dates: start: 1997

REACTIONS (18)
  - Hypothalamo-pituitary disorder [Unknown]
  - Seizure [Unknown]
  - Fall [Unknown]
  - Craniocerebral injury [Unknown]
  - Hemiplegia [Unknown]
  - Orthopaedic procedure [Unknown]
  - Headache [Unknown]
  - Hypertension [Unknown]
  - Off label use [Not Recovered/Not Resolved]
  - Wrong technique in product usage process [Unknown]
  - Road traffic accident [Unknown]
  - Spinal operation [Unknown]
  - Hypothermia [Unknown]
  - Upper limb fracture [Unknown]
  - Tooth abscess [Unknown]
  - Drug withdrawal syndrome [Unknown]
  - Concussion [Unknown]
  - Cerebrovascular accident [Unknown]

NARRATIVE: CASE EVENT DATE: 2006
